FAERS Safety Report 7607295-1 (Version None)
Quarter: 2011Q3

REPORT INFORMATION
  Report Type: 
  Country: None (occurrence: None)
  Receive Date: 20110713
  Receipt Date: 20110629
  Transmission Date: 20111222
  Serious: Yes (Hospitalization)
  Sender: FDA-Public Use
  Company Number: PHHY2011SE57661

PATIENT
  Sex: Female

DRUGS (1)
  1. TEGRETOL [Suspect]
     Indication: CONVULSION
     Dosage: UNK
     Route: 048
     Dates: end: 20110104

REACTIONS (5)
  - C-REACTIVE PROTEIN INCREASED [None]
  - FATIGUE [None]
  - LEUKOCYTOSIS [None]
  - INFECTION [None]
  - URINARY RETENTION [None]
